FAERS Safety Report 7219694-0 (Version None)
Quarter: 2011Q1

REPORT INFORMATION
  Report Type: 
  Country: None (occurrence: None)
  Receive Date: 20110111
  Receipt Date: 20110104
  Transmission Date: 20110831
  Serious: Yes (Death, Life-Threatening)
  Sender: FDA-Public Use
  Company Number: CN-BRISTOL-MYERS SQUIBB COMPANY-15477995

PATIENT
  Age: 60 Year
  Sex: Male

DRUGS (3)
  1. CISPLATIN [Concomitant]
     Indication: LARYNGEAL CANCER
     Route: 042
     Dates: start: 20100101
  2. ERBITUX [Suspect]
     Indication: LARYNGEAL CANCER
     Dosage: 2010 TO 2010:400MG/M2 2010 TO ONG:200MG/M2
     Route: 042
     Dates: start: 20100101
  3. DOCETAXEL [Concomitant]
     Indication: LARYNGEAL CANCER
     Route: 042
     Dates: start: 20100101

REACTIONS (1)
  - PULMONARY EMBOLISM [None]
